FAERS Safety Report 24761873 (Version 1)
Quarter: 2024Q4

REPORT INFORMATION
  Report Type: Report from Study
  Country: GB (occurrence: GB)
  Receive Date: 20241221
  Receipt Date: 20241221
  Transmission Date: 20250115
  Serious: Yes (Hospitalization)
  Sender: BIOCON
  Company Number: GB-ROCHE-3550752

PATIENT

DRUGS (5)
  1. TRASTUZUMAB [Suspect]
     Active Substance: TRASTUZUMAB
     Indication: Ovarian cancer
     Dosage: 800 MILLIGRAM, QD (SOLUTION FOR INFUSION)
     Route: 042
     Dates: start: 20240223, end: 20240223
  2. TRASTUZUMAB [Suspect]
     Active Substance: TRASTUZUMAB
     Dosage: 800 MILLIGRAM, QD  (SOLUTION FOR INFUSION)
     Route: 042
     Dates: start: 20240223, end: 20240223
  3. TRASTUZUMAB [Suspect]
     Active Substance: TRASTUZUMAB
     Dosage: 600 MILLIGRAM, Q3W
     Route: 042
     Dates: start: 20240315, end: 20240315
  4. PERTUZUMAB [Suspect]
     Active Substance: PERTUZUMAB
     Indication: Ovarian cancer
     Dosage: 840 MILLIGRAM, QD
     Route: 042
     Dates: start: 20240223, end: 20240223
  5. PERTUZUMAB [Suspect]
     Active Substance: PERTUZUMAB
     Dosage: 420 MILLIGRAM, Q3W
     Route: 042
     Dates: start: 20240315, end: 20240315

REACTIONS (4)
  - Cholestasis [Not Recovered/Not Resolved]
  - Drug-induced liver injury [Not Recovered/Not Resolved]
  - Blood bilirubin increased [Not Recovered/Not Resolved]
  - Biliary obstruction [Not Recovered/Not Resolved]

NARRATIVE: CASE EVENT DATE: 20240405
